FAERS Safety Report 4326555-3 (Version None)
Quarter: 2004Q1

REPORT INFORMATION
  Report Type: 
  Country: None (occurrence: None)
  Receive Date: 20040325
  Receipt Date: 20030912
  Transmission Date: 20041129
  Serious: Yes (Hospitalization)
  Sender: FDA-Public Use
  Company Number: US048327

PATIENT
  Age: 68 Year
  Sex: Female
  Weight: 63.7 kg

DRUGS (5)
  1. NEULASTA [Suspect]
     Indication: CHEMOTHERAPY
     Dosage: 6 MG, AFTER CHEMO, SC
     Route: 058
  2. DOXORUBICIN HYDROCHLORIDE [Suspect]
     Dosage: 60 MG/M2, EVERY 2 WEEKS, IV
     Route: 042
  3. CYCLOPHOSPHAMIDE [Suspect]
     Dosage: 600 MG/M2, EVERY 2 WEEKS, IV
     Route: 042
  4. DEXAMETHASONE [Concomitant]
  5. ONDANSETRON HCL [Concomitant]

REACTIONS (1)
  - FEBRILE NEUTROPENIA [None]
